FAERS Safety Report 25634683 (Version 1)
Quarter: 2025Q3

REPORT INFORMATION
  Report Type: Spontaneous
  Country: CN (occurrence: CN)
  Receive Date: 20250801
  Receipt Date: 20250801
  Transmission Date: 20251021
  Serious: Yes (Hospitalization)
  Sender: ELI LILLY AND COMPANY
  Company Number: CN-Merck Healthcare KGaA-2025038427

PATIENT
  Age: 54 Year
  Sex: Male
  Weight: 47 kg

DRUGS (7)
  1. ERBITUX [Suspect]
     Active Substance: CETUXIMAB
     Indication: Tongue neoplasm
     Route: 041
     Dates: start: 20250629, end: 20250629
  2. CISPLATIN [Suspect]
     Active Substance: CISPLATIN
     Indication: Tongue neoplasm
     Dosage: 40 MG, DAILY
     Route: 041
     Dates: start: 20250629, end: 20250630
  3. CISPLATIN [Suspect]
     Active Substance: CISPLATIN
     Dosage: 30 MG
     Route: 041
     Dates: start: 20250701, end: 20250701
  4. DOCETAXEL [Suspect]
     Active Substance: DOCETAXEL
     Indication: Tongue neoplasm
     Dosage: 100 MG, DAILY
     Route: 041
     Dates: start: 20250629, end: 20250629
  5. SODIUM CHLORIDE [Concomitant]
     Active Substance: SODIUM CHLORIDE
     Indication: Medication dilution
     Route: 041
     Dates: start: 20250629, end: 20250629
  6. SODIUM CHLORIDE [Concomitant]
     Active Substance: SODIUM CHLORIDE
     Route: 041
     Dates: start: 20250629, end: 20250701
  7. SODIUM CHLORIDE [Concomitant]
     Active Substance: SODIUM CHLORIDE
     Route: 041
     Dates: start: 20250629, end: 20250701

REACTIONS (1)
  - White blood cell count decreased [Recovering/Resolving]

NARRATIVE: CASE EVENT DATE: 20250707
